FAERS Safety Report 15302960 (Version 2)
Quarter: 2018Q3

REPORT INFORMATION
  Report Type: Other
  Country: SE (occurrence: SE)
  Receive Date: 20180821
  Receipt Date: 20180827
  Transmission Date: 20181010
  Serious: Yes (Hospitalization, Other)
  Sender: FDA-Public Use
  Company Number: SE-MERCK KGAA-2054034

PATIENT
  Age: 48 Year
  Sex: Female

DRUGS (3)
  1. AMITRIPTYLINE HYDROCHLORIDE. [Suspect]
     Active Substance: AMITRIPTYLINE HYDROCHLORIDE
     Route: 048
  2. NOVOTHYROX [Suspect]
     Active Substance: LEVOTHYROXINE SODIUM
     Indication: PRODUCT USED FOR UNKNOWN INDICATION
  3. APIXABAN [Suspect]
     Active Substance: APIXABAN

REACTIONS (6)
  - Unresponsive to stimuli [Recovered/Resolved]
  - Haematuria [Unknown]
  - Intentional overdose [Unknown]
  - Anticholinergic syndrome [Unknown]
  - Toxicity to various agents [Recovered/Resolved]
  - Gastrointestinal hypomotility [Recovered/Resolved]
